FAERS Safety Report 11500226 (Version 4)
Quarter: 2016Q3

REPORT INFORMATION
  Report Type: Report from Study
  Country: US (occurrence: US)
  Receive Date: 20150914
  Receipt Date: 20160819
  Transmission Date: 20161109
  Serious: Yes (Hospitalization)
  Sender: FDA-Public Use
  Company Number: US-PFIZER INC-2015296959

PATIENT
  Age: 8 Year
  Sex: Male
  Weight: 27 kg

DRUGS (11)
  1. DEXAMETHASONE. [Suspect]
     Active Substance: DEXAMETHASONE
     Indication: ANAPLASTIC LARGE CELL LYMPHOMA T- AND NULL-CELL TYPES
     Dosage: 5 MG/M2, PO QD ON DAYS 1-2 /DAYS 3-5 PROPHASE
     Route: 048
     Dates: start: 20150323
  2. DEXAMETHASONE. [Suspect]
     Active Substance: DEXAMETHASONE
     Dosage: 5 MG/M2, PO BID ON DAYS 1-5 COURSE A
     Route: 048
     Dates: start: 20150328, end: 20150401
  3. CRIZOTINIB [Suspect]
     Active Substance: CRIZOTINIB
     Indication: ANAPLASTIC LARGE CELL LYMPHOMA T- AND NULL-CELL TYPES
     Dosage: 165 MG/M2, BID ON DAYS 1-21 COURSE A
     Route: 048
     Dates: start: 20150328, end: 20150413
  4. METHOTREXATE SODIUM. [Suspect]
     Active Substance: METHOTREXATE SODIUM
     Indication: ANAPLASTIC LARGE CELL LYMPHOMA T- AND NULL-CELL TYPES
     Dosage: 7.5-12MG IT ON DAY 1 (AGE BASED DOSING) PROPHASE
     Route: 037
     Dates: start: 20150323
  5. CYTARABINE. [Suspect]
     Active Substance: CYTARABINE
     Indication: ANAPLASTIC LARGE CELL LYMPHOMA T- AND NULL-CELL TYPES
     Dosage: 15-24MG IT ON DAY 1 (AGE BASED DOSING) PROPHASE
     Route: 037
     Dates: start: 20150323
  6. CYTARABINE. [Suspect]
     Active Substance: CYTARABINE
     Dosage: 150 MG/M2, OVER 1-30 MINUTES Q12 HOURS ON DAYS 4 AND 5 (TOTAL 4 DOSES) COURSE A
     Route: 042
     Dates: end: 20150401
  7. METHOTREXATE SODIUM. [Suspect]
     Active Substance: METHOTREXATE SODIUM
     Dosage: 3000 MG/M2, OVER 3 HOURS ON DAY 1 COURSE A
     Route: 042
     Dates: start: 20150328
  8. ETOPOSIDE. [Suspect]
     Active Substance: ETOPOSIDE
     Indication: ANAPLASTIC LARGE CELL LYMPHOMA T- AND NULL-CELL TYPES
     Dosage: 100 MG/M2, OVER 2 HOURS ON DAYS 4 AND 5 COURSE A
     Route: 042
     Dates: end: 20150401
  9. CYCLOPHOSPHAMIDE. [Suspect]
     Active Substance: CYCLOPHOSPHAMIDE
     Indication: ANAPLASTIC LARGE CELL LYMPHOMA T- AND NULL-CELL TYPES
     Dosage: 200 MG/M2, CYCLIC, PROPHASE, OVER 15-30 MINUTES ON DAY 1 AND 2
     Route: 042
     Dates: start: 20150323
  10. HYDROCORTISONE ACETATE. [Suspect]
     Active Substance: HYDROCORTISONE ACETATE
     Indication: ANAPLASTIC LARGE CELL LYMPHOMA T- AND NULL-CELL TYPES
     Dosage: 7.5-12MG IT ON DAY 1 (AGE BASED DOSING) PROPHASE
     Route: 037
     Dates: start: 20150323
  11. IFOSFAMIDE. [Suspect]
     Active Substance: IFOSFAMIDE
     Indication: ANAPLASTIC LARGE CELL LYMPHOMA T- AND NULL-CELL TYPES
     Dosage: 800 MG/M2, OVER 60 MIN ON DAYS 1-5 COURSE A
     Route: 042
     Dates: start: 20150328, end: 20150401

REACTIONS (1)
  - Febrile neutropenia [Recovered/Resolved]

NARRATIVE: CASE EVENT DATE: 20150413
